FAERS Safety Report 10402948 (Version 1)
Quarter: 2014Q1

REPORT INFORMATION
  Report Type: Spontaneous
  Country: US (occurrence: None)
  Receive Date: 20130815
  Receipt Date: 20130815
  Transmission Date: 20141002
  Serious: Yes (Hospitalization, Other)
  Sender: FDA-Public Use
  Company Number: ADR-2009-7431

PATIENT
  Sex: Male

DRUGS (2)
  1. LIORESAL INTRATHECAL (BACLOFEN INJECTION) [Suspect]
     Indication: MUSCLE SPASTICITY
     Dosage: UNK MCG
     Route: 037
  2. LIORESAL INTRATHECAL (BACLOFEN INJECTION) [Suspect]
     Indication: CEREBRAL PALSY
     Dosage: UNK MCG
     Route: 037

REACTIONS (11)
  - Underdose [None]
  - Paraesthesia [None]
  - Muscle spasticity [None]
  - Insomnia [None]
  - Lethargy [None]
  - Hyperhidrosis [None]
  - Drug withdrawal syndrome [None]
  - Hypertonia [None]
  - Pruritus [None]
  - Decreased appetite [None]
  - Malaise [None]
